FAERS Safety Report 14004497 (Version 9)
Quarter: 2020Q4

REPORT INFORMATION
  Report Type: Report from Study
  Country: US (occurrence: US)
  Receive Date: 20170922
  Receipt Date: 20201028
  Transmission Date: 20210113
  Serious: Yes (Hospitalization, Other)
  Sender: FDA-Public Use
  Company Number: US-ROCHE-1950377

PATIENT
  Age: 71 Year
  Sex: Male
  Weight: 84.6 kg

DRUGS (18)
  1. CARBOPLATIN. [Concomitant]
     Active Substance: CARBOPLATIN
     Dosage: FORM STRENGTH: 10 MG/ML
     Route: 042
     Dates: start: 20170612
  2. PACLITAXEL. [Concomitant]
     Active Substance: PACLITAXEL
     Dosage: FORM STRENGTH: 6 MG/ML
     Route: 042
     Dates: start: 20170529
  3. PACLITAXEL. [Concomitant]
     Active Substance: PACLITAXEL
     Dosage: FORM STRENGTH: 6 MG/ML
     Route: 042
     Dates: start: 20170612
  4. ATEZOLIZUMAB. [Suspect]
     Active Substance: ATEZOLIZUMAB
     Indication: NON-SMALL CELL LUNG CANCER
     Dosage: 12/JUN/2017 (C1D22), 03/JUL/2017 (C1D43), 07/AUG/2017, 06/SEP/2017 AND 11/OCT/2017 HE RECEIVED ATEZO
     Route: 041
     Dates: start: 20170522
  5. CARBOPLATIN. [Concomitant]
     Active Substance: CARBOPLATIN
     Dosage: FORM STRENGTH: 10 MG/ML
     Route: 042
     Dates: start: 20170703
  6. PACLITAXEL. [Concomitant]
     Active Substance: PACLITAXEL
     Dosage: FORM STRENGTH: 6 MG/ML
     Route: 042
     Dates: start: 20170906
  7. PACLITAXEL. [Concomitant]
     Active Substance: PACLITAXEL
     Dosage: FORM STRENGTH: 6 MG/ML
     Route: 042
     Dates: start: 20170703
  8. PACLITAXEL. [Concomitant]
     Active Substance: PACLITAXEL
     Dosage: FORM STRENGTH: 6 MG/ML
     Route: 042
     Dates: start: 20170807
  9. CARBOPLATIN. [Concomitant]
     Active Substance: CARBOPLATIN
     Dosage: FORM STRENGTH: 10 MG/ML
     Route: 042
     Dates: start: 20170529
  10. CARBOPLATIN. [Concomitant]
     Active Substance: CARBOPLATIN
     Dosage: FORM STRENGTH: 10 MG/ML
     Route: 042
     Dates: start: 20170607
  11. CARBOPLATIN. [Concomitant]
     Active Substance: CARBOPLATIN
     Dosage: FORM STRENGTH: 10 MG/ML
     Route: 042
     Dates: start: 20170807
  12. PACLITAXEL. [Concomitant]
     Active Substance: PACLITAXEL
     Dosage: FORM STRENGTH: 6 MG/ML
     Route: 042
     Dates: start: 20170522
  13. PACLITAXEL. [Concomitant]
     Active Substance: PACLITAXEL
     Dosage: FORM STRENGTH: 6 MG/ML
     Route: 042
     Dates: start: 20170626
  14. CARBOPLATIN. [Concomitant]
     Active Substance: CARBOPLATIN
     Indication: NON-SMALL CELL LUNG CANCER
     Dosage: FORM STRENGTH: 10 MG/ML
     Route: 042
     Dates: start: 20170522
  15. PACLITAXEL. [Concomitant]
     Active Substance: PACLITAXEL
     Indication: NON-SMALL CELL LUNG CANCER
     Dosage: FORM STRENGTH: 6 MG/ML
     Route: 042
     Dates: start: 20170522
  16. PACLITAXEL. [Concomitant]
     Active Substance: PACLITAXEL
     Dosage: FORM STRENGTH: 6 MG/ML
     Route: 042
     Dates: start: 20170607
  17. CARBOPLATIN. [Concomitant]
     Active Substance: CARBOPLATIN
     Dosage: FORM STRENGTH: 10 MG/ML
     Route: 042
     Dates: start: 20170626
  18. CARBOPLATIN. [Concomitant]
     Active Substance: CARBOPLATIN
     Dosage: FORM STRENGTH: 10 MG/ML
     Route: 042
     Dates: start: 20170906

REACTIONS (6)
  - Radiation pneumonitis [Unknown]
  - Pneumonia [Unknown]
  - Rash [Recovered/Resolved]
  - Pyrexia [Unknown]
  - Diarrhoea [Recovered/Resolved]
  - Pneumonia [Unknown]

NARRATIVE: CASE EVENT DATE: 20170607
